FAERS Safety Report 5564718-X (Version None)
Quarter: 2007Q4

REPORT INFORMATION
  Report Type: 
  Country: None (occurrence: None)
  Receive Date: 20071212
  Receipt Date: 20071126
  Transmission Date: 20080405
  Serious: Yes (Other)
  Sender: FDA-Public Use
  Company Number: 2007AL005138

PATIENT
  Age: 32 Year
  Sex: Female
  Weight: 51.2565 kg

DRUGS (1)
  1. AMIDRINE CAPSULES CIV (ISOMETHEPTENE MUCATE DICLORALPHENAZONE AND ACET [Suspect]
     Indication: MIGRAINE
     Dosage: 3, PO
     Route: 048
     Dates: start: 20060118, end: 20060118

REACTIONS (10)
  - ASTHENIA [None]
  - DIZZINESS [None]
  - FALL [None]
  - HEART RATE INCREASED [None]
  - INSOMNIA [None]
  - LOSS OF CONSCIOUSNESS [None]
  - NERVOUSNESS [None]
  - PALPITATIONS [None]
  - RESTLESSNESS [None]
  - SOMNOLENCE [None]
